FAERS Safety Report 15251849 (Version 5)
Quarter: 2018Q3

REPORT INFORMATION
  Report Type: Spontaneous
  Country: US (occurrence: US)
  Receive Date: 20180807
  Receipt Date: 20180917
  Transmission Date: 20181010
  Serious: Yes (Hospitalization, Other)
  Sender: FDA-Public Use
  Company Number: US-PFIZER INC-2018317344

PATIENT
  Age: 69 Year
  Sex: Female
  Weight: 47.63 kg

DRUGS (12)
  1. LYRICA [Suspect]
     Active Substance: PREGABALIN
     Indication: NEURALGIA
     Dosage: 300 MG A DAY
     Route: 048
  2. METHADONE [Concomitant]
     Active Substance: METHADONE HYDROCHLORIDE
     Indication: PAIN
     Dosage: 10 MG, 3X/DAY (TABLET THREE TIMES A DAY BY MOUTH/EVERY 8 HOURS)
     Route: 048
  3. HYDROMORPHONE [Concomitant]
     Active Substance: HYDROMORPHONE
     Indication: PAIN
     Dosage: 8 MG, AS NEEDED (4 MG TABLET, 2 TABLETS EVERY 8 HOURS AS NEEDED FOR PAIN BY MOUTH)
     Route: 048
  4. LYRICA [Suspect]
     Active Substance: PREGABALIN
     Indication: BRACHIAL PLEXOPATHY
     Dosage: 100 MG, 4X/DAY (400MG A DAY DOSE)
     Route: 048
     Dates: start: 201604
  5. LYRICA [Suspect]
     Active Substance: PREGABALIN
     Dosage: 25 MG, UNK (90)
  6. LYRICA [Suspect]
     Active Substance: PREGABALIN
     Dosage: 100 MG, 4X/DAY
     Route: 048
     Dates: end: 2018
  7. ATIVAN [Concomitant]
     Active Substance: LORAZEPAM
     Dosage: UNK
  8. LYRICA [Suspect]
     Active Substance: PREGABALIN
     Dosage: 100 MG, 4X/DAY (GETTING 120 EVERY MONTH) (Q6H)
     Route: 048
     Dates: start: 201605
  9. DILAUDID [Concomitant]
     Active Substance: HYDROMORPHONE HYDROCHLORIDE
     Dosage: UNK
  10. LYRICA [Suspect]
     Active Substance: PREGABALIN
     Dosage: 16 DF, DAILY
     Dates: start: 20180812
  11. LYRICA [Suspect]
     Active Substance: PREGABALIN
     Indication: NEURALGIC AMYOTROPHY
     Dosage: 600MG A DAY
     Route: 048
  12. LYRICA [Suspect]
     Active Substance: PREGABALIN
     Indication: MUSCULOSKELETAL PAIN
     Dosage: 100 MG CAPSULES 4 TIMES A DAY BY MOUTH
     Route: 048
     Dates: start: 2018

REACTIONS (10)
  - Retching [Unknown]
  - Product label issue [Unknown]
  - Pain [Unknown]
  - Neoplasm progression [Unknown]
  - Malaise [Unknown]
  - Condition aggravated [Unknown]
  - Drug intolerance [Unknown]
  - Drug dispensing error [Unknown]
  - Product use issue [Unknown]
  - Leukaemia [Unknown]

NARRATIVE: CASE EVENT DATE: 2016
